FAERS Safety Report 18658614 (Version 3)
Quarter: 2021Q1

REPORT INFORMATION
  Report Type: Spontaneous
  Country: GB (occurrence: GB)
  Receive Date: 20201224
  Receipt Date: 20210225
  Transmission Date: 20210419
  Serious: Yes (Other)
  Sender: FDA-Public Use
  Company Number: GB-BIOVITRUM-2020GB7877

PATIENT
  Age: 62 Year
  Sex: Female

DRUGS (23)
  1. COLECALCIFEROL [Concomitant]
     Active Substance: CHOLECALCIFEROL
     Dates: start: 2016
  2. CITALOPRAM [Concomitant]
     Active Substance: CITALOPRAM HYDROBROMIDE
     Dates: start: 2016
  3. ZORCLONE [Concomitant]
     Dosage: 3.5 (UNITS NOT REPORTED)
     Dates: start: 2016
  4. AMITRYPTYLINE [Concomitant]
     Active Substance: AMITRIPTYLINE
     Dates: start: 2018
  5. FOLIC ACID. [Concomitant]
     Active Substance: FOLIC ACID
     Dates: start: 2018
  6. SYMBICORT [Concomitant]
     Active Substance: BUDESONIDE\FORMOTEROL FUMARATE DIHYDRATE
     Dates: start: 2016
  7. ORLANZAPINE [Concomitant]
     Dates: start: 2017
  8. ORLANZAPINE [Concomitant]
     Dates: start: 2018
  9. ORFADIN [Suspect]
     Active Substance: NITISINONE
     Dates: start: 2016
  10. ELTROXIN [Concomitant]
     Active Substance: LEVOTHYROXINE
     Dates: start: 2015
  11. ORFADIN [Suspect]
     Active Substance: NITISINONE
     Indication: ALKAPTONURIA
     Dates: start: 2015
  12. FOLIC ACID. [Concomitant]
     Active Substance: FOLIC ACID
     Dates: start: 2015
  13. SYMBICORT [Concomitant]
     Active Substance: BUDESONIDE\FORMOTEROL FUMARATE DIHYDRATE
     Dosage: 400/12
     Dates: start: 2017
  14. TEVANATE [Concomitant]
     Active Substance: ALENDRONIC ACID
     Dates: start: 2016
  15. ORFADIN [Suspect]
     Active Substance: NITISINONE
     Dates: start: 2017
  16. SALAMEL [Concomitant]
  17. CALCICHEW [Concomitant]
     Active Substance: CALCIUM CARBONATE
     Dates: start: 2015
  18. VIT D [Concomitant]
     Active Substance: VITAMIN D NOS
     Dates: start: 2018
  19. ORFADIN [Suspect]
     Active Substance: NITISINONE
     Dates: start: 2018
  20. ELTROXIN [Concomitant]
     Active Substance: LEVOTHYROXINE
     Dates: start: 2016
  21. ELTROXIN [Concomitant]
     Active Substance: LEVOTHYROXINE
     Dates: start: 2017
  22. FOLIC ACID. [Concomitant]
     Active Substance: FOLIC ACID
     Dates: start: 2016
  23. FOLIC ACID. [Concomitant]
     Active Substance: FOLIC ACID
     Dates: start: 2017

REACTIONS (2)
  - Amino acid level increased [Not Recovered/Not Resolved]
  - Lenticular opacities [Not Recovered/Not Resolved]

NARRATIVE: CASE EVENT DATE: 2015
